FAERS Safety Report 19001526 (Version 1)
Quarter: 2021Q1

REPORT INFORMATION
  Report Type: Spontaneous
  Country: US (occurrence: US)
  Receive Date: 20210311
  Receipt Date: 20210311
  Transmission Date: 20210420
  Serious: Yes (Disabling)
  Sender: FDA-Public Use
  Company Number: None

PATIENT
  Age: 64 Year
  Sex: Female
  Weight: 67.5 kg

DRUGS (4)
  1. ALPRAZOLAM. [Concomitant]
     Active Substance: ALPRAZOLAM
  2. ATENOLOL. [Concomitant]
     Active Substance: ATENOLOL
  3. XTRA STRENGTH TYLENOL [Concomitant]
  4. HARVONI [Suspect]
     Active Substance: LEDIPASVIR\SOFOSBUVIR
     Indication: HEPATITIS C
     Dosage: ?          QUANTITY:1 TABLET(S);?
     Route: 048
     Dates: start: 20151226, end: 20160226

REACTIONS (4)
  - Hepatitis C [None]
  - Liver function test increased [None]
  - Renal function test abnormal [None]
  - Chronic kidney disease [None]

NARRATIVE: CASE EVENT DATE: 20160515
